FAERS Safety Report 6304761-6 (Version None)
Quarter: 2009Q3

REPORT INFORMATION
  Report Type: 
  Country: None (occurrence: None)
  Receive Date: 20090811
  Receipt Date: 20090803
  Transmission Date: 20100115
  Serious: Yes (Other)
  Sender: FDA-Public Use
  Company Number: B0588048A

PATIENT
  Age: 38 Year
  Sex: Male

DRUGS (1)
  1. LAMITRIN [Suspect]
     Indication: EPILEPSY
     Dosage: 150MG PER DAY
     Route: 048
     Dates: start: 20080101

REACTIONS (4)
  - AGGRESSION [None]
  - AGITATION [None]
  - ANXIETY [None]
  - IRRITABILITY [None]
